FAERS Safety Report 17476641 (Version 1)
Quarter: 2020Q1

REPORT INFORMATION
  Report Type: Spontaneous
  Country: CN (occurrence: CN)
  Receive Date: 20200228
  Receipt Date: 20200228
  Transmission Date: 20200409
  Serious: Yes (Other)
  Sender: FDA-Public Use
  Company Number: CN-ROCHE-2558349

PATIENT
  Age: 43 Year
  Sex: Female
  Weight: 58 kg

DRUGS (1)
  1. XELODA [Suspect]
     Active Substance: CAPECITABINE
     Indication: MALIGNANT ANORECTAL NEOPLASM
     Dosage: USED DRUG 2 WEEKS AND DISCONTINUED FOR ONE WEEK, 3 WEEKS AS ONE COURSE OF TREATMENT
     Route: 048
     Dates: start: 201910

REACTIONS (2)
  - Muscle spasticity [Recovering/Resolving]
  - Myalgia [Recovering/Resolving]

NARRATIVE: CASE EVENT DATE: 20200218
